FAERS Safety Report 8822131 (Version 1)
Quarter: 2012Q4

REPORT INFORMATION
  Report Type: 
  Country: US (occurrence: US)
  Receive Date: 20121003
  Receipt Date: 20121003
  Transmission Date: 20130627
  Serious: Yes (Other)
  Sender: FDA-Public Use
  Company Number: US-SANOFI-AVENTIS-2012SA070080

PATIENT
  Age: 67 Year
  Sex: Female

DRUGS (3)
  1. LANTUS [Suspect]
     Indication: DIABETES
     Dosage: Dose:6 unit(s)
     Route: 058
     Dates: start: 2009
  2. NOVOLOG MIX [Concomitant]
     Indication: DIABETES
     Dosage: IN AM Dose:6 unit(s)
     Route: 058
  3. NOVOLOG [Concomitant]
     Dosage: DURING DAY WHEN BLOOD SUGARS ARE OVER 300

REACTIONS (3)
  - Spinal fracture [Not Recovered/Not Resolved]
  - Balance disorder [Not Recovered/Not Resolved]
  - Blood glucose fluctuation [Unknown]
